FAERS Safety Report 8484739-7 (Version None)
Quarter: 2012Q3

REPORT INFORMATION
  Report Type: 
  Country: None (occurrence: None)
  Receive Date: 20120703
  Receipt Date: 20120529
  Transmission Date: 20120928
  Serious: No
  Sender: FDA-Public Use
  Company Number: US-TEVA-340577USA

PATIENT
  Sex: Female
  Weight: 83.99 kg

DRUGS (7)
  1. NUVIGIL [Suspect]
     Indication: SOMNOLENCE
  2. FAMCICLOVIR [Concomitant]
     Indication: HERPES VIRUS INFECTION
     Dosage: 500 MILLIGRAM;
     Route: 048
  3. LISINOPRIL [Concomitant]
     Indication: BLOOD PRESSURE
     Route: 048
  4. NUVIGIL [Suspect]
     Indication: SLEEP APNOEA SYNDROME
     Dosage: 150 MILLIGRAM;
     Route: 048
     Dates: start: 20120523, end: 20120527
  5. FUROSEMIDE [Concomitant]
     Indication: FLUID RETENTION
     Dosage: 20 MILLIGRAM;
     Route: 048
  6. THYROID TAB [Concomitant]
     Indication: HYPOTHYROIDISM
     Dosage: 60 MILLIGRAM;
     Route: 048
  7. LANSOPRAZOLE [Concomitant]
     Indication: GASTRITIS
     Dosage: 15 MILLIGRAM;
     Route: 048

REACTIONS (6)
  - BRUXISM [None]
  - GLOSSODYNIA [None]
  - SOMNOLENCE [None]
  - HEADACHE [None]
  - APHTHOUS STOMATITIS [None]
  - MUCOSAL INFLAMMATION [None]
